FAERS Safety Report 25531111 (Version 1)
Quarter: 2025Q3

REPORT INFORMATION
  Report Type: Spontaneous
  Country: US (occurrence: US)
  Receive Date: 20250708
  Receipt Date: 20250708
  Transmission Date: 20251021
  Serious: Yes (Other)
  Sender: ELEVATE ORAL CARE
  Company Number: US-Elevate Oral Care-2180137

PATIENT
  Age: 60 Year
  Sex: Female

DRUGS (1)
  1. ALLDAY 5000 [Suspect]
     Active Substance: SODIUM FLUORIDE
     Indication: Dry mouth
     Dates: start: 20250211

REACTIONS (1)
  - Mouth ulceration [Recovered/Resolved]

NARRATIVE: CASE EVENT DATE: 20250211
